FAERS Safety Report 8307449-5 (Version None)
Quarter: 2012Q2

REPORT INFORMATION
  Report Type: 
  Country: None (occurrence: None)
  Receive Date: 20120424
  Receipt Date: 20090727
  Transmission Date: 20120825
  Serious: Yes (Disabling)
  Sender: FDA-Public Use
  Company Number: US-TEVA-2009007513

PATIENT
  Sex: Female
  Weight: 97.61 kg

DRUGS (7)
  1. CELEBREX [Concomitant]
  2. CYMBALTA [Concomitant]
  3. VALIUM [Concomitant]
  4. ACTIQ [Suspect]
     Indication: PAIN
     Dosage: 800 MICROGRAM;
     Route: 002
     Dates: start: 20050301, end: 20090301
  5. AMBIEN [Concomitant]
  6. FENTANYL [Concomitant]
  7. NEURONTIN [Concomitant]

REACTIONS (1)
  - DENTAL CARIES [None]
